FAERS Safety Report 20892175 (Version 1)
Quarter: 2022Q2

REPORT INFORMATION
  Report Type: Other
  Country: RU (occurrence: None)
  Receive Date: 20220530
  Receipt Date: 20220530
  Transmission Date: 20220721
  Serious: Yes (Death, Hospitalization, Other)
  Sender: FDA-Public Use
  Company Number: RU-ROCHE-3103839

PATIENT
  Age: 57 Year
  Sex: Male

DRUGS (22)
  1. RITUXIMAB [Suspect]
     Active Substance: RITUXIMAB
     Indication: B-cell lymphoma
     Dosage: D1
     Route: 042
     Dates: start: 20200731
  2. RITUXIMAB [Suspect]
     Active Substance: RITUXIMAB
     Dosage: D0
     Route: 042
     Dates: start: 20210706
  3. CYCLOPHOSPHAMIDE [Suspect]
     Active Substance: CYCLOPHOSPHAMIDE
     Indication: B-cell lymphoma
     Route: 042
     Dates: start: 20210706
  4. DOXORUBICIN [Suspect]
     Active Substance: DOXORUBICIN
     Indication: B-cell lymphoma
     Route: 042
     Dates: start: 20210706
  5. VINCRISTINE [Suspect]
     Active Substance: VINCRISTINE
     Indication: B-cell lymphoma
     Route: 042
     Dates: start: 20210706
  6. PREDNISOLONE [Suspect]
     Active Substance: PREDNISOLONE
     Indication: B-cell lymphoma
     Dosage: D1-5
     Route: 042
     Dates: start: 20210706
  7. BENDAMUSTINE [Suspect]
     Active Substance: BENDAMUSTINE
     Indication: B-cell lymphoma
     Dosage: 360 MG/CYCLE
     Route: 042
     Dates: start: 20200731
  8. ACETAMINOPHEN [Concomitant]
     Active Substance: ACETAMINOPHEN
     Indication: Pyrexia
  9. IBUPROFEN [Concomitant]
     Active Substance: IBUPROFEN
  10. AVELOX [Concomitant]
     Active Substance: MOXIFLOXACIN HYDROCHLORIDE
  11. MEROPENEM [Concomitant]
     Active Substance: MEROPENEM
  12. LINEZOLID [Concomitant]
     Active Substance: LINEZOLID
  13. FLUCONAZOLE [Concomitant]
     Active Substance: FLUCONAZOLE
     Indication: Prophylaxis
  14. ENOXAPARIN SODIUM [Concomitant]
     Active Substance: ENOXAPARIN SODIUM
     Indication: Prophylaxis
  15. OMEPRAZOLE [Concomitant]
     Active Substance: OMEPRAZOLE
     Indication: Prophylaxis
  16. NOREPINEPHRINE [Concomitant]
     Active Substance: NOREPINEPHRINE
     Dosage: 100 TO 400 NG
  17. PENTAGLOBIN [Concomitant]
     Active Substance: HUMAN IMMUNOGLOBULIN G
  18. NOREPINEPHRINE [Concomitant]
     Active Substance: NOREPINEPHRINE
     Dosage: 100 NG/KG/MIN
  19. NOREPINEPHRINE [Concomitant]
     Active Substance: NOREPINEPHRINE
     Dosage: 1,000 NG/KG/MIN
  20. FUROSEMIDE [Concomitant]
     Active Substance: FUROSEMIDE
  21. EPINEPHRINE [Concomitant]
     Active Substance: EPINEPHRINE
     Dosage: (TOTAL 10 MG)
  22. SODIUM BICARBONATE [Concomitant]
     Active Substance: SODIUM BICARBONATE
     Route: 042

REACTIONS (11)
  - West Nile viral infection [Fatal]
  - Multiple organ dysfunction syndrome [Fatal]
  - Meningoencephalitis viral [Fatal]
  - Febrile neutropenia [Recovered/Resolved]
  - Pneumonia [Unknown]
  - Coma [Unknown]
  - Loss of consciousness [Unknown]
  - Atelectasis [Unknown]
  - Eye haemorrhage [Unknown]
  - COVID-19 [Unknown]
  - Bacterial infection [Unknown]

NARRATIVE: CASE EVENT DATE: 20210721
